FAERS Safety Report 17870255 (Version 1)
Quarter: 2020Q2

REPORT INFORMATION
  Report Type: Spontaneous
  Country: US (occurrence: US)
  Receive Date: 20200605
  Receipt Date: 20200605
  Transmission Date: 20200714
  Serious: No
  Sender: FDA-Public Use
  Company Number: None

PATIENT

DRUGS (1)
  1. DEXRAZOXANE. [Suspect]
     Active Substance: DEXRAZOXANE
     Dosage: ?          OTHER FREQUENCY:ONCE;?

REACTIONS (4)
  - Therapy cessation [None]
  - Feeling abnormal [None]
  - Cough [None]
  - Tremor [None]

NARRATIVE: CASE EVENT DATE: 20200531
